FAERS Safety Report 10063679 (Version 2)
Quarter: 2014Q2

REPORT INFORMATION
  Report Type: Spontaneous
  Country: GB (occurrence: GB)
  Receive Date: 20140407
  Receipt Date: 20140407
  Transmission Date: 20141212
  Serious: Yes (Hospitalization, Other)
  Sender: FDA-Public Use
  Company Number: PHFR2014GB000447

PATIENT
  Age: 30 Year
  Sex: Female

DRUGS (11)
  1. CLOZARIL [Suspect]
     Dosage: UNK
     Route: 048
     Dates: start: 20090721
  2. FLUOXETINE [Concomitant]
     Dosage: 40 MG, UNK
     Route: 048
     Dates: start: 20100519
  3. SERETIDE [Concomitant]
     Dosage: 1 DF, BID
     Route: 055
  4. METFORMIN [Concomitant]
     Dosage: 2000 MG, UNK
     Route: 048
     Dates: start: 20111012
  5. OMEPRAZOLE [Concomitant]
     Dosage: 40 MG, UNK
     Route: 048
     Dates: start: 20090407
  6. PIPERAZINE [Concomitant]
     Dosage: 100 MG, UNK
     Route: 048
     Dates: start: 20131010
  7. PEPPERMINT [Concomitant]
     Dosage: 3 DF, UNK (3 TABLETS)
     Route: 048
     Dates: start: 20130910
  8. FERROUS SULPHATE [Concomitant]
     Dosage: 600 MG, UNK
     Route: 048
     Dates: start: 20130427
  9. COLECALCIFEROL [Concomitant]
     Dosage: 800 IU, UNK
     Route: 048
     Dates: start: 20140220
  10. VALPROATE SEMISODIUM [Concomitant]
     Dosage: 1750 MG, UNK
     Route: 048
     Dates: start: 20090530
  11. CICLESONIDE [Concomitant]
     Dosage: 4 DF, UNK
     Route: 055

REACTIONS (3)
  - Chronic obstructive pulmonary disease [Not Recovered/Not Resolved]
  - Lower respiratory tract infection [Recovered/Resolved]
  - C-reactive protein increased [Unknown]
